FAERS Safety Report 6937763-7 (Version None)
Quarter: 2010Q3

REPORT INFORMATION
  Report Type: 
  Country: None (occurrence: None)
  Receive Date: 20100823
  Receipt Date: 20100812
  Transmission Date: 20110219
  Serious: Yes (Death, Hospitalization)
  Sender: FDA-Public Use
  Company Number: JP-BRISTOL-MYERS SQUIBB COMPANY-15232986

PATIENT
  Age: 56 Year
  Sex: Female
  Weight: 36 kg

DRUGS (6)
  1. ABILIFY [Suspect]
     Indication: SCHIZOPHRENIA
     Route: 048
     Dates: start: 20100514, end: 20100518
  2. ZYPREXA [Suspect]
     Dosage: THERAPY DATES:21APR10-13MAY10;23DAYS,14MAY10-17MAY10
     Route: 048
     Dates: start: 20100303, end: 20100420
  3. STERONEMA [Suspect]
     Dosage: ENEMA
     Route: 054
     Dates: start: 20100427, end: 20100518
  4. ULCERLMIN [Concomitant]
     Dates: start: 20100427, end: 20100518
  5. BROTIZOLAM [Concomitant]
     Dates: start: 20100505, end: 20100517
  6. ROHYPNOL [Concomitant]
     Dates: start: 20100505, end: 20100517

REACTIONS (2)
  - BLOOD GLUCOSE ABNORMAL [None]
  - LIVER DISORDER [None]
